FAERS Safety Report 24894517 (Version 1)
Quarter: 2025Q1

REPORT INFORMATION
  Report Type: Spontaneous
  Country: US (occurrence: US)
  Receive Date: 20250128
  Receipt Date: 20250128
  Transmission Date: 20250408
  Serious: No
  Sender: JOHNSON AND JOHNSON
  Company Number: US-JNJFOC-20241274176

PATIENT
  Age: 77 Year
  Sex: Female

DRUGS (26)
  1. OPSUMIT [Suspect]
     Active Substance: MACITENTAN
     Indication: Product used for unknown indication
     Route: 048
     Dates: end: 2024
  2. TYVASO DPI [Suspect]
     Active Substance: TREPROSTINIL
     Indication: Pulmonary arterial hypertension
     Route: 055
  3. TYVASO DPI [Suspect]
     Active Substance: TREPROSTINIL
     Route: 055
     Dates: start: 2024, end: 2024
  4. TYVASO DPI [Suspect]
     Active Substance: TREPROSTINIL
     Route: 055
     Dates: start: 2024, end: 2024
  5. TYVASO DPI [Suspect]
     Active Substance: TREPROSTINIL
     Route: 055
     Dates: start: 20240826, end: 2024
  6. BIFIDOBACTERIUM ANIMALIS LACTIS [Concomitant]
     Active Substance: BIFIDOBACTERIUM ANIMALIS LACTIS
  7. METFORMIN HYDROCHLORIDE [Concomitant]
     Active Substance: METFORMIN HYDROCHLORIDE
  8. MELATONIN [MAGNESIUM CITRATE;MELATONIN;PYRIDOXINE HYDROCHLORIDE] [Concomitant]
  9. LOSARTAN POTASSIUM [Concomitant]
     Active Substance: LOSARTAN POTASSIUM
  10. ATORVASTATIN CALCIUM [Concomitant]
     Active Substance: ATORVASTATIN CALCIUM
  11. SILDENAFIL CITRATE [Concomitant]
     Active Substance: SILDENAFIL CITRATE
  12. APIXABAN [Concomitant]
     Active Substance: APIXABAN
  13. METOPROLOL SUCCINATE [Concomitant]
     Active Substance: METOPROLOL SUCCINATE
  14. GLIMEPIRIDE CF [Concomitant]
  15. OXYGEN [Concomitant]
     Active Substance: OXYGEN
  16. FUROSEMIDE [Concomitant]
     Active Substance: FUROSEMIDE
  17. VITAMIN K2 + D3 [COLECALCIFEROL;MENAQUINONE] [Concomitant]
  18. METOPROLOL TARTRATE [Concomitant]
     Active Substance: METOPROLOL TARTRATE
  19. ACETAMINOPHEN [Concomitant]
     Active Substance: ACETAMINOPHEN
  20. PRAVASTATIN SODIUM [Concomitant]
     Active Substance: PRAVASTATIN SODIUM
  21. CALCITONIN SALMON [Concomitant]
     Active Substance: CALCITONIN SALMON
  22. VITAMIN D2 [Concomitant]
     Active Substance: ERGOCALCIFEROL
  23. SOTATERCEPT CSRK [Concomitant]
  24. MUPIROCIN SANDOZ [Concomitant]
  25. LISINOPRIL PFIZER [LISINOPRIL] [Concomitant]
  26. FERROUS SULFATE [Concomitant]
     Active Substance: FERROUS SULFATE

REACTIONS (3)
  - Cough [Unknown]
  - Dyspnoea exertional [Not Recovered/Not Resolved]
  - Peripheral swelling [Unknown]
